FAERS Safety Report 11357342 (Version 1)
Quarter: 2015Q3

REPORT INFORMATION
  Report Type: Spontaneous
  Country: US (occurrence: US)
  Receive Date: 20150803
  Receipt Date: 20150803
  Transmission Date: 20151125
  Serious: No
  Sender: FDA-Public Use
  Company Number: US-ELI_LILLY_AND_COMPANY-US201402000410

PATIENT
  Sex: Female

DRUGS (4)
  1. STRATTERA [Suspect]
     Active Substance: ATOMOXETINE HYDROCHLORIDE
     Dosage: 80 MG, UNKNOWN
     Route: 065
     Dates: start: 201401
  2. CONCERTA [Suspect]
     Active Substance: METHYLPHENIDATE HYDROCHLORIDE
     Dosage: 36 MG, UNKNOWN
     Route: 065
  3. STRATTERA [Suspect]
     Active Substance: ATOMOXETINE HYDROCHLORIDE
     Indication: ATTENTION DEFICIT/HYPERACTIVITY DISORDER
     Dosage: 40 MG, UNKNOWN
     Route: 065
     Dates: start: 201310
  4. CONCERTA [Suspect]
     Active Substance: METHYLPHENIDATE HYDROCHLORIDE
     Indication: PRODUCT USED FOR UNKNOWN INDICATION
     Dosage: 36 MG, UNKNOWN
     Route: 065
     Dates: end: 201311

REACTIONS (3)
  - Disorientation [Unknown]
  - Irritability [Unknown]
  - Amnesia [Not Recovered/Not Resolved]
